FAERS Safety Report 4791761-0 (Version None)
Quarter: 2005Q4

REPORT INFORMATION
  Report Type: 
  Country: None (occurrence: None)
  Receive Date: 20051005
  Receipt Date: 20050922
  Transmission Date: 20060501
  Serious: Yes (Other)
  Sender: FDA-Public Use
  Company Number: 200509467

PATIENT
  Sex: Female

DRUGS (3)
  1. RHOPHYLAC (ANTI-D IMMUNOGLOBULIN)  (ZLB BEHRING) [Suspect]
     Indication: PROPHYLAXIS
     Dosage: IV
     Route: 042
     Dates: start: 20050921, end: 20050921
  2. RHOPHYLAC (ANTI-D IMMUNOGLOBULIN)  (ZLB BEHRING) [Suspect]
     Indication: RHESUS INCOMPATIBILITY
     Dosage: IV
     Route: 042
     Dates: start: 20050921, end: 20050921
  3. RHOGAM [Concomitant]

REACTIONS (3)
  - DRUG EXPOSURE DURING PREGNANCY [None]
  - FOETAL-MATERNAL HAEMORRHAGE [None]
  - TREMOR [None]
